FAERS Safety Report 10895646 (Version 2)
Quarter: 2015Q1

REPORT INFORMATION
  Report Type: Spontaneous
  Country: SI (occurrence: SI)
  Receive Date: 20150307
  Receipt Date: 20150326
  Transmission Date: 20150721
  Serious: Yes (Hospitalization, Other)
  Sender: FDA-Public Use
  Company Number: SI-AMGEN-SVNSP2015019900

PATIENT
  Age: 79 Year
  Sex: Female

DRUGS (11)
  1. BYOL [Concomitant]
     Active Substance: BISOPROLOL
     Dosage: 2.5 MG, BID
     Dates: start: 20150225
  2. CALCIUM CARBONATE. [Concomitant]
     Active Substance: CALCIUM CARBONATE
     Dosage: 1 G, QD
     Dates: start: 20141015
  3. PROLIA [Suspect]
     Active Substance: DENOSUMAB
     Indication: OSTEOPOROSIS POSTMENOPAUSAL
     Dosage: 60 MG, Q6MO
     Route: 058
     Dates: start: 20140407
  4. MAREVAN [Concomitant]
     Active Substance: WARFARIN SODIUM
     Dosage: 3 MG, UNK
     Dates: start: 20141015
  5. MICARDIS [Concomitant]
     Active Substance: TELMISARTAN
     Dosage: 80 MG, QD
     Dates: start: 20150225
  6. MICARDIS PLUS [Concomitant]
     Active Substance: HYDROCHLOROTHIAZIDE\TELMISARTAN
     Dosage: 80 MG/12.5 MG, QD (IN THE MORNING)
     Dates: start: 20141015
  7. ROCALTROL [Concomitant]
     Active Substance: CALCITRIOL
     Dosage: 0.25 MUG, QOD
     Dates: start: 20150203
  8. APAURIN [Concomitant]
     Active Substance: DIAZEPAM
     Dosage: 2.5 MG - 5MG, QD
     Dates: start: 20141015
  9. SINVACOR [Concomitant]
     Active Substance: SIMVASTATIN
     Dosage: 10 MG, QD
     Dates: start: 20141015
  10. VITAMIN D                          /00107901/ [Concomitant]
     Active Substance: ERGOCALCIFEROL
  11. AMOKSIKLAV                         /00756801/ [Concomitant]
     Dosage: 1 G, Q12H

REACTIONS (16)
  - Pleural effusion [Unknown]
  - Dysuria [Unknown]
  - Fatigue [Unknown]
  - Cardiac failure [Unknown]
  - Supraventricular tachycardia [Unknown]
  - Tachyarrhythmia [Unknown]
  - Hypocalcaemia [Unknown]
  - Atrial flutter [Unknown]
  - Aortic arteriosclerosis [Unknown]
  - Cardiomegaly [Unknown]
  - Cough [Unknown]
  - Asthenia [Unknown]
  - Cast application [Unknown]
  - Tachycardia [Unknown]
  - Radius fracture [Unknown]
  - Bronchopneumonia [Unknown]

NARRATIVE: CASE EVENT DATE: 2015
